FAERS Safety Report 7311117-6 (Version None)
Quarter: 2011Q1

REPORT INFORMATION
  Report Type: 
  Country: None (occurrence: None)
  Receive Date: 20110224
  Receipt Date: 20110214
  Transmission Date: 20110831
  Serious: Yes (Other)
  Sender: FDA-Public Use
  Company Number: US-ROCHE-738995

PATIENT
  Sex: Female
  Weight: 59 kg

DRUGS (2)
  1. ACCUTANE [Suspect]
     Indication: ACNE
     Route: 065
     Dates: start: 19970101, end: 19980101
  2. ACCUTANE [Suspect]
     Dosage: 20 MG 3 DAILY
     Route: 065
     Dates: start: 19980422, end: 19980901

REACTIONS (10)
  - INFLAMMATORY BOWEL DISEASE [None]
  - CROHN'S DISEASE [None]
  - LIP DRY [None]
  - ANXIETY [None]
  - COLITIS ULCERATIVE [None]
  - HAEMORRHOIDS [None]
  - POLYP [None]
  - GASTROINTESTINAL INJURY [None]
  - IRRITABLE BOWEL SYNDROME [None]
  - CHLOASMA [None]
